FAERS Safety Report 9778446 (Version 1)
Quarter: 2013Q4

REPORT INFORMATION
  Report Type: Spontaneous
  Country: US (occurrence: None)
  Receive Date: 20131219
  Receipt Date: 20131219
  Transmission Date: 20140711
  Serious: Yes (Death, Hospitalization)
  Sender: FDA-Public Use
  Company Number: 2013AP010460

PATIENT
  Age: 80 Year
  Sex: Male

DRUGS (15)
  1. ALLOPURINOL [Suspect]
     Indication: GOUT
     Route: 048
  2. TRIAMTERENE AND HYDROCHLOROTHIAZIDE [Suspect]
     Indication: HYPERTENSION
     Dosage: 1 KBQ2; QOD; PO
     Route: 048
  3. FLUTICASONE PROPIONATE [Concomitant]
  4. MONTELUKAST [Concomitant]
  5. IRBESARTAN [Concomitant]
  6. AMLODIPINE [Concomitant]
  7. GLIBENCLAMIDE [Concomitant]
  8. SALBUTAMOL [Concomitant]
  9. TERAZOSIN [Concomitant]
  10. SIMVASTATIN [Concomitant]
  11. AZELASTINE [Concomitant]
  12. MECLOZINE [Concomitant]
  13. FEXOFENADINE [Concomitant]
  14. CYCLOBENZAPRINE [Concomitant]
  15. HYDROCODONE W/PARACETAMOL [Concomitant]

REACTIONS (13)
  - Drug reaction with eosinophilia and systemic symptoms [None]
  - Cerebrovascular accident [None]
  - Dysgeusia [None]
  - Chills [None]
  - Dysuria [None]
  - Decreased appetite [None]
  - Diarrhoea [None]
  - Nausea [None]
  - Dehydration [None]
  - Renal failure chronic [None]
  - Renal failure acute [None]
  - Vasculitis [None]
  - Drug interaction [None]
